FAERS Safety Report 23397951 (Version 1)
Quarter: 2024Q1

REPORT INFORMATION
  Report Type: Spontaneous
  Country: US (occurrence: US)
  Receive Date: 20240112
  Receipt Date: 20240112
  Transmission Date: 20240410
  Serious: No
  Sender: FDA-Public Use
  Company Number: US-PFIZER INC-PV202400003213

PATIENT
  Age: 86 Year
  Sex: Female

DRUGS (1)
  1. FELDENE [Suspect]
     Active Substance: PIROXICAM
     Dosage: UNK

REACTIONS (2)
  - Drug intolerance [Unknown]
  - Anaemia [Unknown]
